FAERS Safety Report 13763030 (Version 1)
Quarter: 2017Q3

REPORT INFORMATION
  Report Type: Spontaneous
  Country: US (occurrence: US)
  Receive Date: 20170718
  Receipt Date: 20170718
  Transmission Date: 20171127
  Serious: Yes (Other)
  Sender: FDA-Public Use
  Company Number: None

PATIENT
  Age: 70 Year
  Sex: Female
  Weight: 90.72 kg

DRUGS (1)
  1. CRESTOR [Suspect]
     Active Substance: ROSUVASTATIN CALCIUM
     Indication: DYSLIPIDAEMIA
     Route: 048
     Dates: start: 20170613, end: 20170705

REACTIONS (4)
  - Product substitution issue [None]
  - Abdominal pain upper [None]
  - Myalgia [None]
  - Diarrhoea [None]

NARRATIVE: CASE EVENT DATE: 20170613
